FAERS Safety Report 10252164 (Version 2)
Quarter: 2015Q2

REPORT INFORMATION
  Report Type: Spontaneous
  Country: IT (occurrence: IT)
  Receive Date: 20140623
  Receipt Date: 20150520
  Transmission Date: 20150821
  Serious: Yes (Hospitalization)
  Sender: FDA-Public Use
  Company Number: IT-RANBAXY-2014RR-82691

PATIENT
  Age: 49 Year
  Sex: Male

DRUGS (9)
  1. LANTUS ^100 U/ML SOLUTION FOR INJECTION^ [Concomitant]
     Indication: DIABETES MELLITUS
     Dosage: 10 UNITS
     Route: 058
     Dates: start: 20131204
  2. EUTIROX ^100 TABS MICROGRAMS^ 50 TABLETS [Concomitant]
     Indication: PRODUCT USED FOR UNKNOWN INDICATION
     Dosage: 100 ?G, UNK
     Route: 048
     Dates: start: 20140103
  3. HUMALOG ^KWIKPEN 100 U/ML SOLUTION FOR INJECTION^ [Concomitant]
     Indication: DIABETES MELLITUS
     Dosage: 17 UNITS
     Route: 058
     Dates: start: 20131204
  4. CARDIOASPIRIN [Concomitant]
     Active Substance: ASPIRIN
     Indication: PRODUCT USED FOR UNKNOWN INDICATION
     Dosage: 100 ?G, UNK
     Route: 048
     Dates: start: 20131204
  5. EPREX ^40000 IU SOLUTION FOR INJECTION^ [Concomitant]
     Indication: CHRONIC KIDNEY DISEASE
     Dosage: 80 UNITS
     Route: 058
     Dates: start: 20131204
  6. TRIATEC ^2.5 MG^ 28 TABLETS [Concomitant]
     Indication: PRODUCT USED FOR UNKNOWN INDICATION
     Dosage: 1.25 MG, UNK
     Route: 048
     Dates: start: 20140103
  7. PEPTAZOL ^14 TABLETS 20 MG GASTROIN BLISTER^ [Concomitant]
     Indication: PRODUCT USED FOR UNKNOWN INDICATION
     Dosage: 20 MG, UNK
     Route: 048
     Dates: start: 20131204
  8. NORVASC ^10 MG^ [Concomitant]
     Indication: PRODUCT USED FOR UNKNOWN INDICATION
     Dosage: 5 MG, UNK
     Route: 048
     Dates: start: 20140103
  9. AMOXICILLIN. [Suspect]
     Active Substance: AMOXICILLIN
     Indication: COUGH
     Dosage: 1 G, DAILY
     Route: 048
     Dates: start: 20140130, end: 20140131

REACTIONS (2)
  - Urticaria [Recovered/Resolved]
  - Laryngeal oedema [Recovered/Resolved]

NARRATIVE: CASE EVENT DATE: 20140130
